FAERS Safety Report 9559885 (Version 1)
Quarter: 2013Q3

REPORT INFORMATION
  Report Type: Spontaneous
  Country: US (occurrence: None)
  Receive Date: 20130906
  Receipt Date: 20130906
  Transmission Date: 20140515
  Serious: Yes (Other)
  Sender: FDA-Public Use
  Company Number: 163-POMAL-13074245

PATIENT
  Age: 82 Year
  Sex: Female
  Weight: 45.4 kg

DRUGS (12)
  1. POMALYST [Suspect]
     Indication: PLASMA CELL MYELOMA
     Route: 048
     Dates: start: 201305
  2. CELEBREX (CELECOXIB) [Concomitant]
  3. TRAMADOL HCL [Concomitant]
  4. DONEPEZIL HCL (DONEPEZIL HYDROCHLORIDE) [Concomitant]
  5. OXYCODONE ACETAMINOPHEN (OXYCOCET) [Concomitant]
  6. TROSPIUM CHLORIDE (TROSPIUM CHLORIDE) [Concomitant]
  7. METOPROLOL SUCCINATE (METOPROLOL SUCCINATE) [Concomitant]
  8. LIDODERM (LIDOCAINE) [Concomitant]
  9. ARANESP (DARBEPOETIN ALFA) [Concomitant]
  10. RENAL (NEPHROVITE) [Concomitant]
  11. ASPIRIN (ACETYLSALICYLIC ACID) [Concomitant]
  12. VITAMIN D (ERGOCALCIFEROL) [Concomitant]

REACTIONS (1)
  - Renal impairment [None]
